FAERS Safety Report 5754432-X (Version None)
Quarter: 2008Q2

REPORT INFORMATION
  Report Type: 
  Country: None (occurrence: None)
  Receive Date: 20080530
  Receipt Date: 20080519
  Transmission Date: 20081010
  Serious: Yes (Other)
  Sender: FDA-Public Use
  Company Number: CN-PFIZER INC-2008033881

PATIENT
  Age: 65 Year
  Sex: Male

DRUGS (3)
  1. ZYVOX [Suspect]
     Indication: BRAIN ABSCESS
     Route: 042
  2. TIENAM [Concomitant]
  3. SULPERAZON [Concomitant]

REACTIONS (2)
  - BACTERIAL INFECTION [None]
  - CEREBRAL DISORDER [None]
